FAERS Safety Report 8495173-8 (Version None)
Quarter: 2012Q3

REPORT INFORMATION
  Report Type: 
  Country: None (occurrence: None)
  Receive Date: 20120709
  Receipt Date: 20120627
  Transmission Date: 20120928
  Serious: No
  Sender: FDA-Public Use
  Company Number: US-BAYER-2012-063850

PATIENT
  Age: 21 Year
  Sex: Female

DRUGS (2)
  1. MIRENA [Suspect]
     Indication: ENDOMETRIOSIS
     Dosage: 20 ?G/D, CONT
     Route: 015
     Dates: start: 20111101
  2. PROGESTERONE [Concomitant]

REACTIONS (2)
  - VULVOVAGINAL MYCOTIC INFECTION [None]
  - VAGINITIS BACTERIAL [None]
